FAERS Safety Report 13652490 (Version 9)
Quarter: 2018Q3

REPORT INFORMATION
  Report Type: Report from Study
  Country: US (occurrence: US)
  Receive Date: 20170614
  Receipt Date: 20180822
  Transmission Date: 20181010
  Serious: Yes (Hospitalization, Other)
  Sender: FDA-Public Use
  Company Number: US-ACTELION-A-NJ2017-154252

PATIENT
  Age: 71 Year
  Sex: Female
  Weight: 69.84 kg

DRUGS (10)
  1. UPTRAVI [Suspect]
     Active Substance: SELEXIPAG
     Dosage: UNK
     Route: 048
  2. ADCIRCA [Concomitant]
     Active Substance: TADALAFIL
  3. VELETRI [Suspect]
     Active Substance: EPOPROSTENOL
     Indication: PULMONARY ARTERIAL HYPERTENSION
     Dosage: 5 NG/KG, PER MIN
     Route: 042
  4. UPTRAVI [Suspect]
     Active Substance: SELEXIPAG
     Indication: PULMONARY ARTERIAL HYPERTENSION
     Dosage: 1000 MCG, BID
     Route: 048
  5. UPTRAVI [Suspect]
     Active Substance: SELEXIPAG
     Dosage: 1400 MCG, BID
     Route: 048
     Dates: start: 201706
  6. ADEMPAS [Concomitant]
     Active Substance: RIOCIGUAT
  7. OPSUMIT [Suspect]
     Active Substance: MACITENTAN
     Indication: PULMONARY ARTERIAL HYPERTENSION
     Dosage: 10 MG, BID
     Route: 048
  8. UPTRAVI [Suspect]
     Active Substance: SELEXIPAG
     Dosage: 1600 MCG, BID
     Route: 048
  9. WARFARIN [Concomitant]
     Active Substance: WARFARIN
  10. UPTRAVI [Suspect]
     Active Substance: SELEXIPAG
     Dosage: 1400 MCG, BID
     Route: 048
     Dates: start: 20170612

REACTIONS (15)
  - Anaemia [Unknown]
  - Pulmonary oedema [Unknown]
  - Diarrhoea [Unknown]
  - Hypotension [Unknown]
  - Malaise [Unknown]
  - Treatment noncompliance [Unknown]
  - Abdominal discomfort [Unknown]
  - Headache [Unknown]
  - Dizziness [Unknown]
  - Dyspnoea exertional [Unknown]
  - Dyspnoea [Unknown]
  - Blood pressure systolic decreased [Unknown]
  - Cough [Unknown]
  - Fatigue [Recovering/Resolving]
  - Oedema peripheral [Unknown]
